FAERS Safety Report 16134775 (Version 2)
Quarter: 2019Q3

REPORT INFORMATION
  Report Type: Report from Study
  Country: JP (occurrence: JP)
  Receive Date: 20190331
  Receipt Date: 20190716
  Transmission Date: 20191004
  Serious: Yes (Hospitalization)
  Sender: FDA-Public Use
  Company Number: JP-ELI_LILLY_AND_COMPANY-JP201903011586

PATIENT
  Age: 48 Year
  Sex: Male

DRUGS (23)
  1. IXEKIZUMAB [Suspect]
     Active Substance: IXEKIZUMAB
     Indication: PSORIASIS
     Dosage: 160 MG
     Route: 058
     Dates: start: 20171108, end: 20171108
  2. NERISONA [Concomitant]
     Active Substance: DIFLUCORTOLONE VALERATE
     Indication: PSORIASIS
     Dosage: UNK
     Route: 062
  3. CLOBETASOL PROPIONATE. [Concomitant]
     Active Substance: CLOBETASOL PROPIONATE
     Indication: PSORIASIS
     Dosage: UNK
     Route: 062
  4. BESOFTEN [Concomitant]
     Active Substance: PENTOSAN POLYSULFATE SODIUM
     Indication: PSORIASIS
     Dosage: UNK
     Route: 062
  5. THYRADIN [Concomitant]
     Active Substance: LEVOTHYROXINE
     Indication: HYPOPITUITARISM
  6. TEPRENONE [Concomitant]
     Active Substance: TEPRENONE
     Indication: PROPHYLAXIS
  7. IXEKIZUMAB [Suspect]
     Active Substance: IXEKIZUMAB
     Dosage: 80 MG
     Route: 058
     Dates: start: 20180523
  8. TALMEA [Concomitant]
     Indication: PSORIASIS
     Dosage: UNK
     Route: 062
  9. TOUCHRON [Concomitant]
     Indication: PAIN
     Route: 062
  10. GLYCORAN [Concomitant]
     Active Substance: GLYCERIN
     Indication: DIABETES MELLITUS
  11. SOLULACT [Concomitant]
     Indication: FLUID REPLACEMENT
  12. FULMETA [Concomitant]
     Active Substance: MOMETASONE
     Indication: PSORIASIS
     Dosage: UNK
     Route: 062
  13. METHYCOBIDE [Concomitant]
     Active Substance: METHYLCOBALAMIN
     Indication: PROPHYLAXIS
  14. URSODEOXYCHOLIC ACID [Concomitant]
     Active Substance: URSODIOL
     Indication: PROPHYLAXIS
  15. DAIPHEN [Concomitant]
     Active Substance: SULFAMETHOXAZOLE\TRIMETHOPRIM
     Indication: PROPHYLAXIS
     Route: 048
  16. SUMILU STICK [Concomitant]
     Indication: PAIN
     Route: 062
  17. CELECOX [Concomitant]
     Active Substance: CELECOXIB
     Indication: PAIN
  18. CEFDINIR. [Concomitant]
     Active Substance: CEFDINIR
     Indication: PROPHYLAXIS
     Route: 048
  19. GLUCOSE [Concomitant]
     Active Substance: DEXTROSE
     Indication: NUTRITIONAL SUPPLEMENTATION
  20. IXEKIZUMAB [Suspect]
     Active Substance: IXEKIZUMAB
     Dosage: 80 MG
     Route: 058
     Dates: start: 20171122, end: 20180328
  21. BONALFAHIGH [Concomitant]
     Indication: PSORIASIS
     Dosage: UNK
     Route: 062
  22. LOXOPROFEN SODIUM HYDRATE [Concomitant]
     Active Substance: LOXOPROFEN SODIUM DIHYDRATE
     Indication: PAIN
  23. FEBURIC [Concomitant]
     Active Substance: FEBUXOSTAT
     Indication: PROPHYLAXIS

REACTIONS (2)
  - Cellulitis [Recovered/Resolved]
  - Adrenal insufficiency [Recovered/Resolved]

NARRATIVE: CASE EVENT DATE: 20180507
